FAERS Safety Report 21785113 (Version 1)
Quarter: 2022Q4

REPORT INFORMATION
  Report Type: Spontaneous
  Country: ES (occurrence: ES)
  Receive Date: 20221227
  Receipt Date: 20221227
  Transmission Date: 20230112
  Serious: Yes (Hospitalization, Other)
  Sender: FDA-Public Use
  Company Number: None

PATIENT
  Age: 52 Year
  Sex: Female
  Weight: 69 kg

DRUGS (3)
  1. CARBOPLATIN [Suspect]
     Active Substance: CARBOPLATIN
     Indication: Small cell lung cancer
     Dosage: 350 MG, SINGLE
     Route: 042
     Dates: start: 20220413, end: 20220413
  2. CARBOPLATIN [Suspect]
     Active Substance: CARBOPLATIN
     Dosage: 468 MG, SINGLE
     Route: 042
     Dates: start: 20220427, end: 20220427
  3. ETOPOSIDE [Suspect]
     Active Substance: ETOPOSIDE
     Indication: Small cell lung cancer
     Dosage: 88 MG IN 500ML OF PHYSIOLOGICAL SALINE SOLUTION PER DAY (FIRST 3 DAYS OF THE CYCLE).
     Route: 042
     Dates: start: 20220427, end: 20220429

REACTIONS (1)
  - Pneumonia viral [Recovered/Resolved]

NARRATIVE: CASE EVENT DATE: 20220430
